FAERS Safety Report 19610692 (Version 4)
Quarter: 2021Q3

REPORT INFORMATION
  Report Type: Spontaneous
  Country: AU (occurrence: AU)
  Receive Date: 20210726
  Receipt Date: 20210903
  Transmission Date: 20211014
  Serious: Yes (Hospitalization)
  Sender: FDA-Public Use
  Company Number: AU-TASMAN PHARMA, INC.-2021TSM00057

PATIENT
  Sex: Male

DRUGS (22)
  1. CLOZAPINE. [Suspect]
     Active Substance: CLOZAPINE
     Dosage: 450 MG
     Dates: start: 20200205, end: 20200310
  2. CLOZAPINE. [Suspect]
     Active Substance: CLOZAPINE
     Dosage: 450 MG
     Dates: start: 20200128, end: 20200204
  3. CLOZAPINE. [Suspect]
     Active Substance: CLOZAPINE
     Dosage: 750 MG
     Dates: start: 20210223, end: 20210509
  4. CLOZAPINE. [Suspect]
     Active Substance: CLOZAPINE
     Dosage: 600 MG
     Dates: start: 20200710, end: 20200922
  5. CLOZAPINE. [Suspect]
     Active Substance: CLOZAPINE
     Dosage: 1050 MG
     Dates: start: 20210706, end: 20210719
  6. CLOZAPINE. [Suspect]
     Active Substance: CLOZAPINE
     Dosage: 500 MG
     Dates: start: 20200311, end: 20200504
  7. CLOZAPINE. [Suspect]
     Active Substance: CLOZAPINE
     Dosage: 550 MG
     Dates: start: 20200525, end: 20200709
  8. CLOZAPINE. [Suspect]
     Active Substance: CLOZAPINE
     Dosage: 250 MG
     Dates: start: 20210527, end: 20210527
  9. CLOZAPINE. [Suspect]
     Active Substance: CLOZAPINE
     Dosage: 650 MG
     Dates: start: 20210601, end: 20210607
  10. CLOZAPINE. [Suspect]
     Active Substance: CLOZAPINE
     Dosage: 400 MG
     Dates: start: 20191217, end: 20200106
  11. CLOZAPINE. [Suspect]
     Active Substance: CLOZAPINE
     Dosage: 1100 MG
     Dates: start: 20210720, end: 20210823
  12. CLOZAPINE. [Suspect]
     Active Substance: CLOZAPINE
     Dosage: 525 MG
     Dates: start: 20200505, end: 20200524
  13. CLOZAPINE. [Suspect]
     Active Substance: CLOZAPINE
     Dosage: 650 MG
     Dates: start: 20210202, end: 20210215
  14. CLOZAPINE. [Suspect]
     Active Substance: CLOZAPINE
     Dosage: 700 MG
     Dates: start: 20210216, end: 20210222
  15. CLOZAPINE. [Suspect]
     Active Substance: CLOZAPINE
     Dosage: 400 MG
     Dates: start: 20200107, end: 20200127
  16. CLOZAPINE. [Suspect]
     Active Substance: CLOZAPINE
     Dosage: 750 MG
     Dates: start: 20210510, end: 20210526
  17. CLOZAPINE. [Suspect]
     Active Substance: CLOZAPINE
     Dosage: 650 MG
     Dates: start: 20201201, end: 20210201
  18. CLOZAPINE. [Suspect]
     Active Substance: CLOZAPINE
     Dosage: 650 MG
     Dates: start: 20201111, end: 20201130
  19. CLOZAPINE. [Suspect]
     Active Substance: CLOZAPINE
     Dosage: 750 MG
     Dates: start: 20210528, end: 20210531
  20. CLOZAPINE. [Suspect]
     Active Substance: CLOZAPINE
     Dosage: 850 MG
     Dates: start: 20210608, end: 20210705
  21. CLOZAPINE. [Suspect]
     Active Substance: CLOZAPINE
     Dosage: 600 MG, 1X/DAY
     Dates: start: 20210824
  22. CLOZAPINE. [Suspect]
     Active Substance: CLOZAPINE
     Dosage: 650 MG
     Dates: start: 20200923, end: 20201110

REACTIONS (3)
  - Mental disorder [Unknown]
  - Off label use [Recovered/Resolved]
  - Hospitalisation [Unknown]

NARRATIVE: CASE EVENT DATE: 20200319
